FAERS Safety Report 4854683-2 (Version None)
Quarter: 2005Q4

REPORT INFORMATION
  Report Type: 
  Country: None (occurrence: None)
  Receive Date: 20051215
  Receipt Date: 20030605
  Transmission Date: 20060501
  Serious: Yes (Death, Hospitalization, Other)
  Sender: FDA-Public Use
  Company Number: US-MERCK-0306USA00754

PATIENT
  Age: 78 Year
  Sex: Female
  Weight: 55 kg

DRUGS (19)
  1. VIOXX [Suspect]
     Indication: OSTEOARTHRITIS
     Route: 048
     Dates: start: 20010405, end: 20010610
  2. VIOXX [Suspect]
     Indication: SPINAL COLUMN STENOSIS
     Route: 048
     Dates: start: 20010405, end: 20010610
  3. FOSAMAX [Concomitant]
     Route: 048
     Dates: start: 20010423
  4. ASPIRIN [Concomitant]
     Route: 048
     Dates: start: 20010423
  5. NITROGLYCERIN [Concomitant]
     Route: 048
     Dates: start: 20010423
  6. CAPOTEN [Concomitant]
     Route: 048
     Dates: start: 20010423
  7. AMBIEN [Concomitant]
     Route: 048
     Dates: start: 20010423
  8. CALTRATE PLUS [Concomitant]
     Route: 048
     Dates: start: 20010423
  9. CALTRATE PLUS [Concomitant]
     Route: 048
     Dates: start: 20010423
  10. DARVOCET-N 100 [Concomitant]
     Route: 048
     Dates: start: 20010423
  11. ACETAMINOPHEN [Concomitant]
     Route: 048
     Dates: start: 20010423
  12. MAALOX FAST BLOCKER [Concomitant]
     Route: 048
     Dates: start: 20010423
  13. MILK OF MAGNESIA TAB [Concomitant]
     Route: 048
     Dates: start: 20010423
  14. BISACODYL [Concomitant]
     Route: 048
     Dates: start: 20010423
  15. GLYBURIDE [Concomitant]
     Route: 048
     Dates: start: 20010423
  16. ULTRAM [Concomitant]
     Route: 048
     Dates: start: 20010423
  17. PROZAC [Concomitant]
     Route: 048
     Dates: start: 20010423
  18. XANAX [Concomitant]
     Route: 048
     Dates: start: 20010423
  19. FLEET ENEMA [Concomitant]
     Route: 065

REACTIONS (43)
  - ABDOMINAL HERNIA [None]
  - ABDOMINAL PAIN [None]
  - ACTIVATED PARTIAL THROMBOPLASTIN TIME PROLONGED [None]
  - ACUTE MYOCARDIAL INFARCTION [None]
  - ANAEMIA [None]
  - ANGINA PECTORIS [None]
  - AORTIC ARTERIOSCLEROSIS [None]
  - ASPARTATE AMINOTRANSFERASE INCREASED [None]
  - ASTHENIA [None]
  - BACK PAIN [None]
  - BLOOD ALKALINE PHOSPHATASE INCREASED [None]
  - BLOOD GLUCOSE INCREASED [None]
  - BLOOD POTASSIUM DECREASED [None]
  - BLOOD PRESSURE INCREASED [None]
  - BLOOD SODIUM DECREASED [None]
  - BLOOD UREA INCREASED [None]
  - BRONCHOPNEUMONIA [None]
  - BUNDLE BRANCH BLOCK [None]
  - CARDIAC FAILURE CONGESTIVE [None]
  - CARDIOMEGALY [None]
  - CONFUSIONAL STATE [None]
  - CONVULSION [None]
  - CORONARY ARTERY DISEASE [None]
  - DIABETES MELLITUS INSULIN-DEPENDENT [None]
  - DUODENAL ULCER [None]
  - FALL [None]
  - GASTRIC HAEMORRHAGE [None]
  - GRAVITATIONAL OEDEMA [None]
  - HAEMORRHAGE [None]
  - HALLUCINATION [None]
  - LEUKOCYTOSIS [None]
  - LUNG INFILTRATION [None]
  - MOANING [None]
  - MYOCARDIAL ISCHAEMIA [None]
  - PALPITATIONS [None]
  - PANCREATITIS [None]
  - PEPTIC ULCER [None]
  - PNEUMONIA [None]
  - PRURITUS [None]
  - SPINAL FRACTURE [None]
  - URINARY TRACT INFECTION [None]
  - URINE KETONE BODY PRESENT [None]
  - VOMITING [None]
